FAERS Safety Report 4579390-5 (Version None)
Quarter: 2005Q1

REPORT INFORMATION
  Report Type: 
  Country: None (occurrence: None)
  Receive Date: 20050209
  Receipt Date: 20050121
  Transmission Date: 20050727
  Serious: Yes (Hospitalization, Disabling, Other)
  Sender: FDA-Public Use
  Company Number: US_0501111460

PATIENT
  Age: 65 Year
  Sex: Male
  Weight: 136 kg

DRUGS (2)
  1. HUMULIN 70/30 [Suspect]
     Dates: start: 19950101
  2. PLAVIX [Concomitant]

REACTIONS (4)
  - ABASIA [None]
  - BLOOD GLUCOSE INCREASED [None]
  - CEREBROVASCULAR ACCIDENT [None]
  - VISUAL ACUITY REDUCED [None]
